FAERS Safety Report 9210925 (Version 1)
Quarter: 2013Q2

REPORT INFORMATION
  Report Type: Spontaneous
  Country: GB (occurrence: GB)
  Receive Date: 20130404
  Receipt Date: 20130404
  Transmission Date: 20140414
  Serious: Yes (Other)
  Sender: FDA-Public Use
  Company Number: PHHY2013GB030595

PATIENT
  Age: 26 Year
  Sex: Female
  Weight: 49.43 kg

DRUGS (1)
  1. PROPRANOLOL HYDROCHLORIDE [Suspect]
     Indication: ANXIETY
     Dosage: 160 MG, UNK
     Route: 048
     Dates: start: 20120501, end: 20130301

REACTIONS (1)
  - Hypoaesthesia [Recovered/Resolved]
